FAERS Safety Report 5447747-6 (Version None)
Quarter: 2007Q3

REPORT INFORMATION
  Report Type: 
  Country: None (occurrence: None)
  Receive Date: 20070910
  Receipt Date: 20070904
  Transmission Date: 20080115
  Serious: Yes (Hospitalization)
  Sender: FDA-Public Use
  Company Number: A0544316A

PATIENT
  Age: 45 Year
  Sex: Male
  Weight: 97.9 kg

DRUGS (7)
  1. TOSITUMOMAB [Suspect]
     Indication: NON-HODGKIN'S LYMPHOMA
     Route: 042
     Dates: start: 20021115, end: 20021115
  2. IODINE I 131 TOSITUMOMAB [Suspect]
     Indication: NON-HODGKIN'S LYMPHOMA
     Route: 042
     Dates: start: 20021115, end: 20021115
  3. TOSITUMOMAB [Suspect]
     Route: 042
     Dates: start: 20021122, end: 20021122
  4. IODINE I 131 TOSITUMOMAB [Suspect]
     Route: 042
     Dates: start: 20021122, end: 20021122
  5. COUMADIN [Concomitant]
     Dates: start: 20021024
  6. POTASSIUM IODIDE [Concomitant]
     Dates: start: 20021114
  7. LEVOXYL [Concomitant]
     Dates: start: 20021022

REACTIONS (3)
  - CHEST PAIN [None]
  - PERICARDITIS [None]
  - PLEURISY [None]
